FAERS Safety Report 7632120-2 (Version None)
Quarter: 2011Q3

REPORT INFORMATION
  Report Type: 
  Country: None (occurrence: None)
  Receive Date: 20110725
  Receipt Date: 20110725
  Transmission Date: 20111222
  Serious: Yes (Other)
  Sender: FDA-Public Use
  Company Number: None

PATIENT
  Age: 74 Year
  Sex: Male
  Weight: 106.59 kg

DRUGS (1)
  1. ULORIC [Suspect]
     Indication: GOUT
     Dosage: ONE PILL
     Route: 048
     Dates: start: 20110608, end: 20110707

REACTIONS (3)
  - PAINFUL DEFAECATION [None]
  - FAECES HARD [None]
  - OEDEMA PERIPHERAL [None]
